FAERS Safety Report 12997488 (Version 3)
Quarter: 2018Q3

REPORT INFORMATION
  Report Type: Report from Study
  Country: US (occurrence: US)
  Receive Date: 20161205
  Receipt Date: 20180830
  Transmission Date: 20181010
  Serious: Yes (Other)
  Sender: FDA-Public Use
  Company Number: PHEH2016US030975

PATIENT
  Age: 35 Year
  Sex: Female

DRUGS (2)
  1. SANDOSTATIN LAR DEPOT [Suspect]
     Active Substance: OCTREOTIDE ACETATE
     Indication: GIGANTISM
     Dosage: 20 MG, QMO EVERY 28 TO 32 DAYS
     Route: 065
  2. SANDOSTATIN LAR DEPOT [Suspect]
     Active Substance: OCTREOTIDE ACETATE
     Indication: ACROMEGALY
     Dosage: 40 MG, QMO EVERY 28 TO 32 DAYS
     Route: 030

REACTIONS (4)
  - Headache [Unknown]
  - Depression [Unknown]
  - Simple partial seizures [Unknown]
  - Arthralgia [Unknown]

NARRATIVE: CASE EVENT DATE: 20161114
